FAERS Safety Report 8115720-5 (Version None)
Quarter: 2012Q1

REPORT INFORMATION
  Report Type: 
  Country: None (occurrence: None)
  Receive Date: 20120206
  Receipt Date: 20120125
  Transmission Date: 20120608
  Serious: Yes (Death)
  Sender: FDA-Public Use
  Company Number: JP-ROCHE-1025124

PATIENT
  Sex: Female
  Weight: 68 kg

DRUGS (9)
  1. RANIBIZUMAB [Suspect]
     Dates: start: 20090714
  2. MUCOSTA [Concomitant]
     Dates: start: 20090611, end: 20110613
  3. RANIBIZUMAB [Suspect]
     Dates: start: 20090818
  4. RANIBIZUMAB [Suspect]
     Dates: start: 20100205
  5. CEFADROXIL [Concomitant]
     Dates: start: 20090611, end: 20110613
  6. CORINAEL [Concomitant]
  7. RANIBIZUMAB [Suspect]
     Indication: AGE-RELATED MACULAR DEGENERATION
     Route: 050
     Dates: start: 20110611
  8. VISUDYNE [Concomitant]
     Dates: start: 20081101
  9. DOXAZOSIN MESYLATE [Concomitant]

REACTIONS (1)
  - DEATH [None]
